FAERS Safety Report 5608543-X (Version None)
Quarter: 2008Q1

REPORT INFORMATION
  Report Type: 
  Country: None (occurrence: None)
  Receive Date: 20080125
  Receipt Date: 20080109
  Transmission Date: 20080703
  Serious: Yes (Hospitalization)
  Sender: FDA-Public Use
  Company Number: F01200800078

PATIENT
  Age: 73 Year
  Sex: Female

DRUGS (4)
  1. ZOLPIDEM TARTRATE [Suspect]
     Indication: INSOMNIA
     Dosage: 6.25 MG; TIME TO ONSET
     Route: 048
     Dates: start: 20070807, end: 20071224
  2. SEROQUEL [Concomitant]
  3. DORAL [Concomitant]
  4. ABILIFY [Concomitant]

REACTIONS (15)
  - ANOREXIA [None]
  - ARTHRALGIA [None]
  - CONDITION AGGRAVATED [None]
  - CONSTIPATION [None]
  - FEAR [None]
  - FEELING ABNORMAL [None]
  - HALLUCINATION, VISUAL [None]
  - ILL-DEFINED DISORDER [None]
  - INSOMNIA [None]
  - MUSCULOSKELETAL STIFFNESS [None]
  - PAIN IN EXTREMITY [None]
  - POOR QUALITY SLEEP [None]
  - SCHIZOPHRENIA [None]
  - TREMOR [None]
  - VISION BLURRED [None]
